FAERS Safety Report 12761139 (Version 1)
Quarter: 2016Q3

REPORT INFORMATION
  Report Type: Spontaneous
  Country: US (occurrence: US)
  Receive Date: 20160920
  Receipt Date: 20160920
  Transmission Date: 20161109
  Serious: Yes (Hospitalization, Other)
  Sender: FDA-Public Use
  Company Number: US-009507513-1609USA008403

PATIENT
  Sex: Female

DRUGS (8)
  1. RIVOTRIL [Concomitant]
     Active Substance: CLONAZEPAM
  2. OMEPRAZOLE. [Concomitant]
     Active Substance: OMEPRAZOLE
  3. METOPROLOL. [Concomitant]
     Active Substance: METOPROLOL
  4. SIMETHICONE (DIMETHICONE) [Concomitant]
     Active Substance: DIMETHICONE
  5. MORPHINE SULFATE. [Concomitant]
     Active Substance: MORPHINE SULFATE
     Route: 048
  6. ZOLAFREN [Concomitant]
  7. ACIDOPHILUS [Concomitant]
     Active Substance: LACTOBACILLUS ACIDOPHILUS
  8. DIFICID [Suspect]
     Active Substance: FIDAXOMICIN
     Indication: CLOSTRIDIUM DIFFICILE COLITIS
     Dosage: 200 MG, TWICE A DAY
     Route: 048
     Dates: start: 20160905

REACTIONS (4)
  - Blindness [Not Recovered/Not Resolved]
  - Abdominal discomfort [Not Recovered/Not Resolved]
  - Diarrhoea [Not Recovered/Not Resolved]
  - Abdominal pain [Not Recovered/Not Resolved]

NARRATIVE: CASE EVENT DATE: 20160911
